FAERS Safety Report 5714059-2 (Version None)
Quarter: 2008Q2

REPORT INFORMATION
  Report Type: 
  Country: None (occurrence: None)
  Receive Date: 20080423
  Receipt Date: 20080310
  Transmission Date: 20081010
  Serious: No
  Sender: FDA-Public Use
  Company Number: US-BAYER-US-2007-027921

PATIENT
  Age: 44 Year
  Sex: Female
  Weight: 91 kg

DRUGS (1)
  1. MIRENA [Suspect]
     Indication: MENORRHAGIA
     Route: 015
     Dates: start: 20070706

REACTIONS (5)
  - COMPLICATION OF DEVICE INSERTION [None]
  - IUCD COMPLICATION [None]
  - MENORRHAGIA [None]
  - METRORRHAGIA [None]
  - VAGINAL PAIN [None]
